FAERS Safety Report 9501588 (Version 2)
Quarter: 2013Q4

REPORT INFORMATION
  Report Type: Spontaneous
  Country: IT (occurrence: IT)
  Receive Date: 20130905
  Receipt Date: 20131025
  Transmission Date: 20140711
  Serious: Yes (Hospitalization)
  Sender: FDA-Public Use
  Company Number: IT-TEVA-428686ISR

PATIENT
  Age: 4 Year
  Sex: Female
  Weight: 17 kg

DRUGS (1)
  1. VINCRISTINA TEVA [Suspect]
     Indication: ACUTE LYMPHOCYTIC LEUKAEMIA
     Dosage: 1.5 MG/M2 DAILY;
     Route: 040
     Dates: start: 20121106, end: 20121106

REACTIONS (3)
  - Neuropathy peripheral [Recovered/Resolved]
  - Hypotonia [Recovered/Resolved]
  - Areflexia [Recovered/Resolved]
